FAERS Safety Report 9626788 (Version 1)
Quarter: 2013Q4

REPORT INFORMATION
  Report Type: Spontaneous
  Country: DE (occurrence: DE)
  Receive Date: 20131016
  Receipt Date: 20131016
  Transmission Date: 20140711
  Serious: Yes (Other)
  Sender: FDA-Public Use
  Company Number: DE-GLAXOSMITHKLINE-D0079649A

PATIENT
  Age: 61 Year
  Sex: Male

DRUGS (2)
  1. TURIXIN [Suspect]
     Indication: STAPHYLOCOCCAL INFECTION
     Route: 045
     Dates: start: 20130326, end: 20130331
  2. HCT [Concomitant]
     Route: 048

REACTIONS (5)
  - Hypersensitivity vasculitis [Unknown]
  - Pruritus [Not Recovered/Not Resolved]
  - Burning sensation [Not Recovered/Not Resolved]
  - Pain [Not Recovered/Not Resolved]
  - Paraesthesia [Not Recovered/Not Resolved]
